FAERS Safety Report 16136117 (Version 1)
Quarter: 2019Q1

REPORT INFORMATION
  Report Type: Spontaneous
  Country: IR (occurrence: IR)
  Receive Date: 20190329
  Receipt Date: 20190329
  Transmission Date: 20190418
  Serious: Yes (Hospitalization, Other)
  Sender: FDA-Public Use
  Company Number: IR-INDIVIOR LIMITED-INDV-118507-2019

PATIENT
  Age: 27 Year
  Sex: Male

DRUGS (1)
  1. BUPRENORPHINE. [Suspect]
     Active Substance: BUPRENORPHINE
     Indication: DRUG DEPENDENCE
     Dosage: 7.5 MILLIGRAM, QD
     Route: 048

REACTIONS (5)
  - Pulmonary embolism [Recovering/Resolving]
  - Wrong technique in product usage process [Recovered/Resolved]
  - Drug dependence [Unknown]
  - Product use issue [Recovered/Resolved]
  - Acute myocardial infarction [Recovering/Resolving]
